FAERS Safety Report 23910195 (Version 1)
Quarter: 2024Q2

REPORT INFORMATION
  Report Type: Spontaneous
  Country: US (occurrence: None)
  Receive Date: 20240526
  Receipt Date: 20240526
  Transmission Date: 20240716
  Serious: Yes (Disabling)
  Sender: FDA-Public Use
  Company Number: None

PATIENT
  Age: 66 Year
  Sex: Male
  Weight: 86.85 kg

DRUGS (3)
  1. CIPROFLOXACIN HYDROCHLORIDE [Suspect]
     Active Substance: CIPROFLOXACIN HYDROCHLORIDE
     Indication: Postoperative care
     Dosage: 10 TABLETS TWICE A DAY ORAL
     Route: 048
  2. CIPROFLOXACIN HYDROCHLORIDE [Suspect]
     Active Substance: CIPROFLOXACIN HYDROCHLORIDE
     Indication: Infection prophylaxis
  3. METOPROLOL [Concomitant]
     Active Substance: METOPROLOL

REACTIONS (8)
  - Nonspecific reaction [None]
  - Arthropathy [None]
  - Gait inability [None]
  - Tendonitis [None]
  - Ligament disorder [None]
  - Joint noise [None]
  - Skin discomfort [None]
  - Paraesthesia [None]

NARRATIVE: CASE EVENT DATE: 20240518
